FAERS Safety Report 8577673-5 (Version None)
Quarter: 2012Q3

REPORT INFORMATION
  Report Type: 
  Country: None (occurrence: None)
  Receive Date: 20120807
  Receipt Date: 20120730
  Transmission Date: 20120928
  Serious: Yes (Other)
  Sender: FDA-Public Use
  Company Number: CA-ROCHE-GNE320197

PATIENT
  Sex: Female
  Weight: 73.178 kg

DRUGS (15)
  1. SYMBICORT [Concomitant]
  2. XOLAIR [Suspect]
     Dates: start: 20100401
  3. PREDNISONE [Concomitant]
  4. XOLAIR [Suspect]
     Route: 058
     Dates: start: 20100107
  5. ALVESCO [Concomitant]
     Indication: PRODUCT USED FOR UNKNOWN INDICATION
  6. REACTINE (CANADA) [Concomitant]
     Indication: PRODUCT USED FOR UNKNOWN INDICATION
  7. XOLAIR [Suspect]
     Route: 058
     Dates: start: 20091210
  8. SINGULAIR [Concomitant]
     Indication: PRODUCT USED FOR UNKNOWN INDICATION
  9. ACTONEL [Concomitant]
     Indication: PRODUCT USED FOR UNKNOWN INDICATION
  10. CARBACHOL [Concomitant]
     Indication: PRODUCT USED FOR UNKNOWN INDICATION
  11. RHINOCORT [Concomitant]
     Indication: PRODUCT USED FOR UNKNOWN INDICATION
  12. XOLAIR [Suspect]
     Indication: ASTHMA
     Dosage: 300 MG, 1/MONTH
     Route: 058
     Dates: start: 20091112
  13. XOLAIR [Suspect]
     Route: 058
     Dates: start: 20100305
  14. CORTISONE ACETATE [Concomitant]
     Indication: PRODUCT USED FOR UNKNOWN INDICATION
  15. AIROMIR [Concomitant]
     Indication: PRODUCT USED FOR UNKNOWN INDICATION

REACTIONS (19)
  - JOINT CREPITATION [None]
  - DYSPHONIA [None]
  - PYREXIA [None]
  - DYSPNOEA [None]
  - NASAL CONGESTION [None]
  - HEADACHE [None]
  - HAIR TEXTURE ABNORMAL [None]
  - TONGUE DISORDER [None]
  - FACE OEDEMA [None]
  - SKIN ODOUR ABNORMAL [None]
  - HYPERSENSITIVITY [None]
  - WEIGHT DECREASED [None]
  - ABDOMINAL DISTENSION [None]
  - PNEUMONIA [None]
  - NAIL INJURY [None]
  - RHINORRHOEA [None]
  - THROAT IRRITATION [None]
  - GLOSSODYNIA [None]
  - EPISTAXIS [None]
